FAERS Safety Report 14019718 (Version 2)
Quarter: 2017Q4

REPORT INFORMATION
  Report Type: Spontaneous
  Country: US (occurrence: US)
  Receive Date: 20170928
  Receipt Date: 20171015
  Transmission Date: 20180321
  Serious: Yes (Life-Threatening, Other)
  Sender: FDA-Public Use
  Company Number: US-009507513-1709USA011651

PATIENT
  Age: 72 Year
  Sex: Female

DRUGS (5)
  1. DEXTROSE. [Suspect]
     Active Substance: DEXTROSE
     Indication: ASTHENIA
     Dosage: UNK
     Route: 042
  2. PROVENTIL [Suspect]
     Active Substance: ALBUTEROL
     Indication: ASTHMA
     Dosage: IINHALER AND NEBULIZER
     Route: 055
  3. SODIUM CHLORIDE. [Concomitant]
     Active Substance: SODIUM CHLORIDE
     Indication: ASTHENIA
  4. DEXTROSE. [Suspect]
     Active Substance: DEXTROSE
     Indication: DEHYDRATION
  5. SODIUM CHLORIDE. [Concomitant]
     Active Substance: SODIUM CHLORIDE
     Indication: DEHYDRATION
     Dosage: UNK
     Route: 042

REACTIONS (3)
  - Hypokalaemia [Unknown]
  - Torsade de pointes [Recovered/Resolved]
  - Metabolic acidosis [Unknown]
